FAERS Safety Report 5782003-8 (Version None)
Quarter: 2008Q2

REPORT INFORMATION
  Report Type: 
  Country: None (occurrence: None)
  Receive Date: 20080618
  Receipt Date: 20080613
  Transmission Date: 20081010
  Serious: Yes (Hospitalization)
  Sender: FDA-Public Use
  Company Number: S08-GER-00718-01

PATIENT
  Age: 4 Year
  Sex: Female

DRUGS (2)
  1. MEMANTINE HCL [Suspect]
     Dates: start: 20080209, end: 20080209
  2. CAPTOPRIL [Suspect]
     Dates: start: 20080209, end: 20080209

REACTIONS (14)
  - ACCIDENTAL DRUG INTAKE BY CHILD [None]
  - BLOOD CREATININE INCREASED [None]
  - DEPRESSED LEVEL OF CONSCIOUSNESS [None]
  - DISTURBANCE IN ATTENTION [None]
  - DRUG TOXICITY [None]
  - ELECTROENCEPHALOGRAM ABNORMAL [None]
  - ENCEPHALITIS [None]
  - EOSINOPHIL PERCENTAGE DECREASED [None]
  - GAIT DISTURBANCE [None]
  - LYMPHOCYTE PERCENTAGE DECREASED [None]
  - MEAN CELL HAEMOGLOBIN DECREASED [None]
  - MEAN CELL VOLUME ABNORMAL [None]
  - PYREXIA [None]
  - SOMNOLENCE [None]
